FAERS Safety Report 19394008 (Version 1)
Quarter: 2021Q2

REPORT INFORMATION
  Report Type: Spontaneous
  Country: US (occurrence: US)
  Receive Date: 20210608
  Receipt Date: 20210608
  Transmission Date: 20210717
  Serious: Yes (Other)
  Sender: FDA-Public Use
  Company Number: None

PATIENT
  Age: 66 Year
  Sex: Female
  Weight: 103.42 kg

DRUGS (13)
  1. CALCIUM [Concomitant]
     Active Substance: CALCIUM
  2. LORAZEPAM. [Concomitant]
     Active Substance: LORAZEPAM
  3. 81 MG ASA [Concomitant]
  4. BENICAR [Concomitant]
     Active Substance: OLMESARTAN MEDOXOMIL
  5. NORVASC [Concomitant]
     Active Substance: AMLODIPINE BESYLATE
  6. HYDROCODONE [Concomitant]
     Active Substance: HYDROCODONE
  7. VITAMIN [Concomitant]
     Active Substance: VITAMINS
  8. DOTAREM [Suspect]
     Active Substance: GADOTERATE MEGLUMINE
     Indication: SCAN WITH CONTRAST
     Route: 042
     Dates: start: 20210326, end: 20210326
  9. CENTRUM [Concomitant]
     Active Substance: VITAMINS
  10. METOPROLOL. [Concomitant]
     Active Substance: METOPROLOL
  11. WALKER [Concomitant]
  12. COLACE [Concomitant]
     Active Substance: DOCUSATE SODIUM
  13. CANE [Concomitant]

REACTIONS (6)
  - Hypersensitivity [None]
  - Musculoskeletal chest pain [None]
  - Blood pressure increased [None]
  - Back pain [None]
  - Alopecia [None]
  - Arthralgia [None]

NARRATIVE: CASE EVENT DATE: 20210326
